FAERS Safety Report 5878618-9 (Version None)
Quarter: 2008Q3

REPORT INFORMATION
  Report Type: 
  Country: None (occurrence: None)
  Receive Date: 20080910
  Receipt Date: 20080829
  Transmission Date: 20090109
  Serious: Yes (Death)
  Sender: FDA-Public Use
  Company Number: 08H-163-0314850-00

PATIENT
  Age: 37 Year
  Sex: Male
  Weight: 213 kg

DRUGS (8)
  1. VANCOMYCIN HCL [Suspect]
     Indication: CELLULITIS
     Dosage: 2 GM, EVERY EIGHT HOURS, INTRAVENOUS
     Route: 042
     Dates: start: 20080814
  2. VANCOMYCIN HCL [Suspect]
     Indication: CULTURE WOUND POSITIVE
     Dosage: 2 GM, EVERY EIGHT HOURS, INTRAVENOUS
     Route: 042
     Dates: start: 20080814
  3. VANCOMYCIN HCL [Suspect]
     Indication: STAPHYLOCOCCAL INFECTION
     Dosage: 2 GM, EVERY EIGHT HOURS, INTRAVENOUS
     Route: 042
     Dates: start: 20080814
  4. XANAX [Concomitant]
  5. CAZAAR (LOSARTAN POTASSIUM) [Concomitant]
  6. LASIX [Concomitant]
  7. LEVAQUIN [Concomitant]
  8. XIGRIS [Concomitant]

REACTIONS (3)
  - BLOOD CREATININE INCREASED [None]
  - CARDIO-RESPIRATORY ARREST [None]
  - MULTI-ORGAN FAILURE [None]
